FAERS Safety Report 4908039-4 (Version None)
Quarter: 2006Q1

REPORT INFORMATION
  Report Type: 
  Country: None (occurrence: None)
  Receive Date: 20060210
  Receipt Date: 20060206
  Transmission Date: 20060701
  Serious: Yes (Other)
  Sender: FDA-Public Use
  Company Number: PT-GLAXOSMITHKLINE-B0409257A

PATIENT
  Age: 23 Year
  Sex: Female
  Weight: 65 kg

DRUGS (2)
  1. NIQUITIN CQ CLEAR 21MG [Suspect]
     Route: 062
     Dates: start: 20060114
  2. MEXAZOLAM [Concomitant]
     Route: 048

REACTIONS (4)
  - APPLICATION SITE PAIN [None]
  - APPLICATION SITE PRURITUS [None]
  - DIARRHOEA [None]
  - TACHYCARDIA [None]
